FAERS Safety Report 17637497 (Version 1)
Quarter: 2020Q2

REPORT INFORMATION
  Report Type: Spontaneous
  Country: CH (occurrence: CH)
  Receive Date: 20200407
  Receipt Date: 20200407
  Transmission Date: 20200713
  Serious: Yes (Other)
  Sender: FDA-Public Use
  Company Number: CH-PFIZER INC-2020138527

PATIENT
  Age: 46 Year
  Sex: Female
  Weight: 55 kg

DRUGS (1)
  1. CYTOTEC [Suspect]
     Active Substance: MISOPROSTOL
     Indication: LABOUR INDUCTION
     Dosage: 1 DF, UNK
     Route: 048
     Dates: start: 20051122, end: 20051123

REACTIONS (5)
  - Product use in unapproved indication [Recovered/Resolved]
  - Haemorrhage [Recovered/Resolved]
  - Placenta accreta [Recovered/Resolved]
  - Off label use [Recovered/Resolved]
  - Uterine contractions abnormal [Unknown]
